FAERS Safety Report 5044074-6 (Version None)
Quarter: 2006Q3

REPORT INFORMATION
  Report Type: 
  Country: None (occurrence: None)
  Receive Date: 20060706
  Receipt Date: 20060613
  Transmission Date: 20061208
  Serious: Yes (Other)
  Sender: FDA-Public Use
  Company Number: AU-AVENTIS-200616368GDDC

PATIENT
  Age: 70 Year
  Sex: Female

DRUGS (5)
  1. ARAVA [Suspect]
     Indication: RHEUMATOID ARTHRITIS
     Route: 048
     Dates: start: 20020619
  2. ARAVA [Suspect]
     Route: 048
  3. METHOTREXATE [Concomitant]
  4. METHOTREXATE [Concomitant]
     Route: 048
  5. KETOPROFEN [Concomitant]

REACTIONS (1)
  - GASTRIC HAEMORRHAGE [None]
